FAERS Safety Report 11821802 (Version 1)
Quarter: 2015Q4

REPORT INFORMATION
  Report Type: Spontaneous
  Country: US (occurrence: US)
  Receive Date: 20151210
  Receipt Date: 20151210
  Transmission Date: 20160305
  Serious: Yes (Death)
  Sender: FDA-Public Use
  Company Number: US-JNJFOC-20150901891

PATIENT
  Age: 70 Year
  Sex: Male

DRUGS (15)
  1. COUMADIN [Concomitant]
     Active Substance: WARFARIN SODIUM
     Route: 048
  2. DELTASONE [Concomitant]
     Active Substance: PREDNISONE
     Route: 048
     Dates: start: 20150502
  3. PROSCAR [Concomitant]
     Active Substance: FINASTERIDE
     Route: 048
  4. DELTASONE [Concomitant]
     Active Substance: PREDNISONE
     Route: 048
  5. DELTASONE [Concomitant]
     Active Substance: PREDNISONE
     Route: 048
  6. DELTASONE [Concomitant]
     Active Substance: PREDNISONE
     Route: 048
  7. ZENPEP [Concomitant]
     Active Substance: PANCRELIPASE\PANCRELIPASE AMYLASE\PANCRELIPASE LIPASE\PANCRELIPASE PROTEASE
     Route: 048
  8. IMBRUVICA [Suspect]
     Active Substance: IBRUTINIB
     Indication: CHRONIC LYMPHOCYTIC LEUKAEMIA
     Route: 048
     Dates: start: 2014, end: 20150523
  9. LEVOTHYROXINE. [Concomitant]
     Active Substance: LEVOTHYROXINE
  10. MAGNESIUM OXIDE. [Concomitant]
     Active Substance: MAGNESIUM OXIDE
     Route: 048
  11. HUMULIN N [Concomitant]
     Active Substance: INSULIN HUMAN
     Dosage: 100 U/ML
     Route: 058
  12. COLCHICINE. [Concomitant]
     Active Substance: COLCHICINE
     Route: 048
  13. DEMADEX [Concomitant]
     Active Substance: TORSEMIDE
  14. K-TAB [Concomitant]
     Active Substance: POTASSIUM CHLORIDE
     Route: 048
  15. ZYLOPRIM [Concomitant]
     Active Substance: ALLOPURINOL
     Route: 048

REACTIONS (2)
  - Bronchopulmonary aspergillosis [Fatal]
  - Incorrect dose administered [Recovered/Resolved]

NARRATIVE: CASE EVENT DATE: 2014
